FAERS Safety Report 5355439-7 (Version None)
Quarter: 2007Q2

REPORT INFORMATION
  Report Type: 
  Country: None (occurrence: None)
  Receive Date: 20070530
  Receipt Date: 20061214
  Transmission Date: 20071010
  Serious: Yes (Hospitalization, Other)
  Sender: FDA-Public Use
  Company Number: US200609003462

PATIENT
  Age: 44 Year
  Sex: Male
  Weight: 97.5 kg

DRUGS (2)
  1. ZYPREXA [Suspect]
     Dates: start: 20020101, end: 20030101
  2. SEROQUEL [Concomitant]

REACTIONS (2)
  - DIABETES MELLITUS [None]
  - DIABETIC KETOACIDOSIS [None]
